FAERS Safety Report 8743244 (Version 3)
Quarter: 2013Q2

REPORT INFORMATION
  Report Type: Report from Study
  Country: DE (occurrence: DE)
  Receive Date: 20120824
  Receipt Date: 20130502
  Transmission Date: 20140414
  Serious: Yes (Hospitalization)
  Sender: FDA-Public Use
  Company Number: DE-GLAXOSMITHKLINE-B0824782A

PATIENT
  Age: 52 Year
  Sex: Female
  Weight: 78 kg

DRUGS (6)
  1. LAPATINIB [Suspect]
     Indication: BREAST CANCER
     Dosage: 750MG PER DAY
     Route: 048
     Dates: start: 20120607
  2. PACLITAXEL [Suspect]
     Indication: BREAST CANCER
     Dosage: 154MG WEEKLY
     Route: 042
     Dates: start: 20120606
  3. MYOCET [Suspect]
     Indication: BREAST CANCER
     Dosage: 39MG WEEKLY
     Route: 042
     Dates: start: 20120606
  4. HERCEPTIN [Suspect]
     Indication: BREAST CANCER
     Route: 042
     Dates: start: 20120608
  5. DEXAMETHASONE [Concomitant]
     Dates: start: 20120809, end: 20120810
  6. FRANOZYTE [Concomitant]
     Dates: start: 20120809, end: 20120813

REACTIONS (2)
  - Alveolitis [Recovered/Resolved]
  - Organising pneumonia [Recovered/Resolved]
